APPROVED DRUG PRODUCT: AVAGE
Active Ingredient: TAZAROTENE
Strength: 0.1%
Dosage Form/Route: CREAM;TOPICAL
Application: N021184 | Product #003 | TE Code: AB
Applicant: ALMIRALL LLC
Approved: Sep 30, 2002 | RLD: Yes | RS: Yes | Type: RX